FAERS Safety Report 7880220-4 (Version None)
Quarter: 2011Q4

REPORT INFORMATION
  Report Type: 
  Country: None (occurrence: None)
  Receive Date: 20111101
  Receipt Date: 20111101
  Transmission Date: 20120403
  Serious: Yes (Hospitalization)
  Sender: FDA-Public Use
  Company Number: US-ABBOTT-11P-163-0868790-00

PATIENT
  Sex: Male
  Weight: 75.818 kg

DRUGS (7)
  1. FOLIC ACID [Concomitant]
     Indication: PRODUCT USED FOR UNKNOWN INDICATION
  2. HUMIRA [Suspect]
     Indication: CROHN'S DISEASE
     Route: 058
     Dates: start: 20110909
  3. ASPIRIN [Concomitant]
     Indication: PRODUCT USED FOR UNKNOWN INDICATION
  4. ASACOL [Concomitant]
     Indication: COLITIS ULCERATIVE
  5. IRON [Concomitant]
     Indication: PRODUCT USED FOR UNKNOWN INDICATION
  6. TOPROL-XL [Concomitant]
     Indication: BLOOD PRESSURE
  7. LIPITOR [Concomitant]
     Indication: BLOOD CHOLESTEROL

REACTIONS (8)
  - ADVERSE DRUG REACTION [None]
  - DYSPNOEA [None]
  - BACTERIAL TEST POSITIVE [None]
  - CHEST PAIN [None]
  - FATIGUE [None]
  - HYPERHIDROSIS [None]
  - CHILLS [None]
  - MOBILITY DECREASED [None]
